FAERS Safety Report 24021234 (Version 2)
Quarter: 2024Q3

REPORT INFORMATION
  Report Type: Spontaneous
  Country: US (occurrence: US)
  Receive Date: 20240627
  Receipt Date: 20240913
  Transmission Date: 20241017
  Serious: No
  Sender: BRISTOL MYERS SQUIBB
  Company Number: US-BRISTOL-MYERS SQUIBB COMPANY-2024-103076

PATIENT
  Age: 43 Year
  Sex: Female

DRUGS (3)
  1. THALOMID [Suspect]
     Active Substance: THALIDOMIDE
     Indication: Plasma cell myeloma
     Route: 048
     Dates: start: 202406
  2. THALOMID [Suspect]
     Active Substance: THALIDOMIDE
     Indication: Xerosis
     Route: 048
     Dates: start: 202406
  3. MIRENA [Concomitant]
     Active Substance: LEVONORGESTREL
     Indication: Abnormal uterine bleeding

REACTIONS (6)
  - Headache [Unknown]
  - Confusional state [Unknown]
  - Abdominal pain upper [Unknown]
  - Swelling face [Unknown]
  - Infection [Unknown]
  - Nausea [Unknown]

NARRATIVE: CASE EVENT DATE: 20240801
